FAERS Safety Report 9386936 (Version 25)
Quarter: 2015Q1

REPORT INFORMATION
  Report Type: Report from Study
  Country: CA (occurrence: CA)
  Receive Date: 20130708
  Receipt Date: 20150220
  Transmission Date: 20150721
  Serious: Yes (Other)
  Sender: FDA-Public Use
  Company Number: CA-ROCHE-1222585

PATIENT
  Age: 65 Year
  Sex: Female
  Weight: 105 kg

DRUGS (6)
  1. ACTEMRA [Suspect]
     Active Substance: TOCILIZUMAB
     Route: 042
     Dates: start: 20130808
  2. METHOTREXATE [Suspect]
     Active Substance: METHOTREXATE
     Indication: PRODUCT USED FOR UNKNOWN INDICATION
     Route: 065
  3. HYDROXYCHLOROQUINE [Concomitant]
     Active Substance: HYDROXYCHLOROQUINE
  4. PANTOPRAZOLE [Concomitant]
     Active Substance: PANTOPRAZOLE SODIUM
  5. ACTEMRA [Suspect]
     Active Substance: TOCILIZUMAB
     Indication: RHEUMATOID ARTHRITIS
     Route: 042
     Dates: start: 20130218
  6. EURO-FOLIC [Concomitant]

REACTIONS (23)
  - Arthralgia [Recovering/Resolving]
  - Ear haemorrhage [Unknown]
  - Joint swelling [Unknown]
  - Drug ineffective [Unknown]
  - Ear pain [Unknown]
  - White blood cell count abnormal [Not Recovered/Not Resolved]
  - Rash [Recovered/Resolved]
  - Oropharyngeal pain [Not Recovered/Not Resolved]
  - Haematochezia [Recovered/Resolved]
  - Anal fissure [Unknown]
  - White blood cell count decreased [Unknown]
  - Pain [Not Recovered/Not Resolved]
  - Cough [Recovered/Resolved]
  - Arthralgia [Recovered/Resolved]
  - Blood pressure increased [Recovered/Resolved]
  - Weight increased [Not Recovered/Not Resolved]
  - Asthenia [Not Recovered/Not Resolved]
  - Eye irritation [Recovering/Resolving]
  - Arthralgia [Not Recovered/Not Resolved]
  - Peripheral swelling [Recovering/Resolving]
  - Arthralgia [Recovered/Resolved]
  - Swelling [Unknown]
  - Fatigue [Not Recovered/Not Resolved]

NARRATIVE: CASE EVENT DATE: 20130429
